FAERS Safety Report 13531598 (Version 1)
Quarter: 2017Q2

REPORT INFORMATION
  Report Type: Spontaneous
  Country: GB (occurrence: GB)
  Receive Date: 20170510
  Receipt Date: 20170510
  Transmission Date: 20170830
  Serious: Yes (Disabling, Other)
  Sender: FDA-Public Use
  Company Number: GB-ASTRAZENECA-2017SE47366

PATIENT
  Age: 62 Year
  Sex: Female
  Weight: 86.2 kg

DRUGS (18)
  1. MST CONTINUS [Concomitant]
     Active Substance: MORPHINE SULFATE
     Dosage: 20 DAILY IN MORNING AND AT NIGHT.
  2. QUETIAPINE. [Suspect]
     Active Substance: QUETIAPINE
     Dosage: 25 UNITS DAILY IN MORNING
     Route: 048
  3. DERMOL [Concomitant]
     Active Substance: BENZALKONIUM CHLORIDE\CHLORHEXIDINE HYDROCHLORIDE\ISOPROPYL MYRISTATE\PARAFFIN
     Dosage: APPLY TO SKIN OR USE AS SOAP SUBSTITUTE
  4. PROCHLORPERAZINE. [Concomitant]
     Active Substance: PROCHLORPERAZINE
     Dosage: 245
  5. INFLUENZA VACCINE [Concomitant]
     Active Substance: INFLUENZA VIRUS VACCINE
     Dosage: 0.5 UNIT
  6. VENLAFAXINE [Concomitant]
     Active Substance: VENLAFAXINE HYDROCHLORIDE
     Dosage: 225 UNITS DAILY
  7. DOCUSATE [Concomitant]
     Active Substance: DOCUSATE
     Dosage: 200 UNITS DAILY
  8. PNEUMOVAX II [Concomitant]
     Active Substance: PNEUMOCOCCAL VACCINE POLYVALENT
     Indication: PNEUMOCOCCAL IMMUNISATION
     Dosage: 0.5
  9. GABAPENTIN. [Concomitant]
     Active Substance: GABAPENTIN
     Dosage: 600 DAILY
  10. GLYCERYL TRINITRATE [Concomitant]
     Active Substance: NITROGLYCERIN
     Dosage: 400 UNITS (SPRAY 1 OR 2 DOSES UNDER TONGUE AS DIRECTED)
  11. FELODIPINE. [Concomitant]
     Active Substance: FELODIPINE
     Dosage: 10 DAILY
  12. CLOBETASOL [Concomitant]
     Active Substance: CLOBETASOL
     Dosage: APPLY AS DIRECTED
  13. QUETIAPINE. [Suspect]
     Active Substance: QUETIAPINE
     Dosage: 50 UNITS DAILY AT NIGHT
     Route: 048
  14. OMEPRAZOLE. [Concomitant]
     Active Substance: OMEPRAZOLE
     Dosage: 60 DAILY (40 MG IN THE MORNING 20 MG AT TEATIME).
  15. PARACETAMOL [Concomitant]
     Active Substance: ACETAMINOPHEN
     Dosage: 1000 UNITS (TO BE TAKEN EVERY 4-6 HOURS UP TO FOUR TIMES A DAY)
  16. MONOMIL XL [Concomitant]
     Active Substance: ISOSORBIDE MONONITRATE
     Dosage: 120 DAILY IN THE MORNING
  17. ATORVASTATIN [Concomitant]
     Active Substance: ATORVASTATIN
     Dosage: 20 DAILY AT NIGHT
  18. ASPIRIN. [Concomitant]
     Active Substance: ASPIRIN
     Dosage: 75 UNITS DAILY

REACTIONS (6)
  - Food interaction [Unknown]
  - Tearfulness [Recovering/Resolving]
  - Hyperhidrosis [Recovering/Resolving]
  - Mental disorder [Unknown]
  - Tremor [Recovering/Resolving]
  - Feeling of body temperature change [Recovering/Resolving]
